FAERS Safety Report 12435151 (Version 1)
Quarter: 2016Q2

REPORT INFORMATION
  Report Type: Spontaneous
  Country: US (occurrence: US)
  Receive Date: 20160603
  Receipt Date: 20160603
  Transmission Date: 20160815
  Serious: No
  Sender: FDA-Public Use
  Company Number: US-ROCHE-1445793

PATIENT
  Sex: Female

DRUGS (2)
  1. XELODA [Suspect]
     Active Substance: CAPECITABINE
     Indication: NEOPLASM MALIGNANT
     Dosage: 14 DAY ON, 7 OFF.
     Route: 048
     Dates: start: 20140717
  2. XELODA [Suspect]
     Active Substance: CAPECITABINE
     Dosage: AT 2 AM AND AT 3 PM FOR 7 DAYS AND THEN 7 DAYS OFF
     Route: 048
     Dates: start: 201408

REACTIONS (6)
  - Skin discolouration [Not Recovered/Not Resolved]
  - Paraesthesia [Not Recovered/Not Resolved]
  - Hypoaesthesia [Recovered/Resolved]
  - Rash [Unknown]
  - Skin discolouration [Unknown]
  - Hypoaesthesia [Not Recovered/Not Resolved]
